FAERS Safety Report 6060806-2 (Version None)
Quarter: 2009Q1

REPORT INFORMATION
  Report Type: 
  Country: None (occurrence: None)
  Receive Date: 20090202
  Receipt Date: 20090127
  Transmission Date: 20090719
  Serious: Yes (Death, Hospitalization)
  Sender: FDA-Public Use
  Company Number: PHHY2009CO02557

PATIENT
  Sex: Male

DRUGS (5)
  1. DIOVAN HCT [Suspect]
     Indication: HYPERTENSION
     Dosage: 1 TABLET PER DAY
     Route: 048
     Dates: start: 20010101, end: 20081229
  2. ASPIRIN [Concomitant]
     Dosage: 100 MG PER DAY
  3. AVANDIA [Concomitant]
  4. PLAVIX [Concomitant]
     Dosage: 75 MG PER DAY
  5. DILATREND [Concomitant]
     Dosage: 1 TABLET PER DAY

REACTIONS (2)
  - GENERAL PHYSICAL HEALTH DETERIORATION [None]
  - INTESTINAL HAEMORRHAGE [None]
